FAERS Safety Report 7960120-1 (Version None)
Quarter: 2011Q4

REPORT INFORMATION
  Report Type: 
  Country: None (occurrence: None)
  Receive Date: 20111206
  Receipt Date: 20111130
  Transmission Date: 20120403
  Serious: Yes (Hospitalization)
  Sender: FDA-Public Use
  Company Number: PHHY2011JP105394

PATIENT
  Age: 13 Year
  Sex: Female

DRUGS (9)
  1. MEDICON (DEXTROMETHORPHAN HYDROBROMIDE) [Concomitant]
     Dosage: 30 MG, UNK
     Route: 048
     Dates: start: 20110822, end: 20110823
  2. VOLTAREN [Suspect]
     Indication: UPPER RESPIRATORY TRACT INFLAMMATION
     Dosage: 25 MG, TID
     Route: 048
     Dates: start: 20110820, end: 20110820
  3. MOTILIUM [Concomitant]
     Indication: GASTROENTERITIS
     Dosage: 20 MG, UNK
     Dates: start: 20110822, end: 20110823
  4. LOXONIN [Suspect]
     Dosage: 60 MG, TID
     Route: 048
     Dates: start: 20110819, end: 20110819
  5. CLARITHROMYCIN [Concomitant]
     Dosage: 400 MG, UNK
     Route: 048
     Dates: start: 20110822, end: 20110823
  6. FLOMOX [Concomitant]
     Dosage: 300 MG, UNK
     Route: 048
     Dates: start: 20110820, end: 20110821
  7. GANATON [Concomitant]
     Dosage: 150 MG, UNK
     Route: 048
     Dates: start: 20110820, end: 20110821
  8. ACETAMINOPHEN [Concomitant]
     Dosage: 630 MG, UNK
     Route: 048
     Dates: start: 20110822, end: 20110822
  9. PREDNISOLONE [Concomitant]
     Dosage: 20 MG, UNK
     Route: 048
     Dates: start: 20110822, end: 20110823

REACTIONS (3)
  - VANISHING BILE DUCT SYNDROME [None]
  - JAUNDICE [None]
  - LYMPHOCYTE STIMULATION TEST POSITIVE [None]
